FAERS Safety Report 9312994 (Version 1)
Quarter: 2013Q2

REPORT INFORMATION
  Report Type: Spontaneous
  Country: US (occurrence: US)
  Receive Date: 20130528
  Receipt Date: 20130528
  Transmission Date: 20140414
  Serious: No
  Sender: FDA-Public Use
  Company Number: US-ABBOTT-13P-163-1076347-00

PATIENT
  Sex: Male
  Weight: 66.28 kg

DRUGS (3)
  1. ANDROGEL [Suspect]
     Indication: BLOOD TESTOSTERONE DECREASED
     Dosage: 60.75 MG DAILY
     Route: 061
     Dates: start: 2012
  2. XALATAN [Concomitant]
     Indication: GLAUCOMA
  3. COSOPT [Concomitant]
     Indication: GLAUCOMA

REACTIONS (3)
  - Erectile dysfunction [Not Recovered/Not Resolved]
  - Blood testosterone decreased [Not Recovered/Not Resolved]
  - Libido disorder [Not Recovered/Not Resolved]
